FAERS Safety Report 4499223-5 (Version None)
Quarter: 2004Q4

REPORT INFORMATION
  Report Type: 
  Country: None (occurrence: None)
  Receive Date: 20041111
  Receipt Date: 20041102
  Transmission Date: 20050328
  Serious: Yes (Other)
  Sender: FDA-Public Use
  Company Number: CH-GLAXOSMITHKLINE-B0350871A

PATIENT
  Age: 72 Year
  Sex: Female

DRUGS (6)
  1. AUGMENTIN '125' [Suspect]
     Dosage: 2G PER DAY
     Route: 048
     Dates: start: 20040916, end: 20040917
  2. SEROQUEL [Suspect]
     Indication: DEMENTIA
     Dosage: 300MG PER DAY
     Route: 048
  3. TRAZODONE HCL [Suspect]
     Indication: DEMENTIA
     Dosage: 100MG PER DAY
     Route: 048
  4. ZESTRIL [Concomitant]
     Dosage: 5MG PER DAY
     Route: 048
  5. TOREM [Concomitant]
     Dosage: 10MG PER DAY
     Route: 048
     Dates: start: 20040901
  6. MARCOUMAR [Concomitant]
     Route: 048

REACTIONS (3)
  - FALL [None]
  - GRAND MAL CONVULSION [None]
  - PERIORBITAL HAEMATOMA [None]
